FAERS Safety Report 4595554-9 (Version None)
Quarter: 2005Q1

REPORT INFORMATION
  Report Type: 
  Country: None (occurrence: None)
  Receive Date: 20050228
  Receipt Date: 20050228
  Transmission Date: 20050727
  Serious: Yes (Death)
  Sender: FDA-Public Use
  Company Number: None

PATIENT
  Age: 45 Year
  Sex: Male
  Weight: 54.8852 kg

DRUGS (1)
  1. FLEXERIL [Suspect]
     Indication: BACK PAIN

REACTIONS (1)
  - SUDDEN CARDIAC DEATH [None]
